FAERS Safety Report 10803719 (Version 2)
Quarter: 2015Q3

REPORT INFORMATION
  Report Type: Spontaneous
  Country: US (occurrence: US)
  Receive Date: 20150217
  Receipt Date: 20150806
  Transmission Date: 20151125
  Serious: Yes (Death, Life-Threatening, Other)
  Sender: FDA-Public Use
  Company Number: US-GLAXOSMITHKLINE-US2015GSK021360

PATIENT
  Age: 66 Year
  Sex: Male

DRUGS (11)
  1. HYPOCHLORITE [Concomitant]
     Active Substance: HYPOCHLORITE ION
  2. PREDNISONE. [Concomitant]
     Active Substance: PREDNISONE
  3. XANAX [Concomitant]
     Active Substance: ALPRAZOLAM
  4. TRAMADOL. [Concomitant]
     Active Substance: TRAMADOL
  5. FOLIC ACID. [Concomitant]
     Active Substance: FOLIC ACID
  6. TAMSULOSIN [Concomitant]
     Active Substance: TAMSULOSIN
  7. RISEDRONATE [Concomitant]
     Active Substance: RISEDRONATE SODIUM
  8. ANORO ELLIPTA [Suspect]
     Active Substance: UMECLIDINIUM BROMIDE\VILANTEROL TRIFENATATE
     Indication: CHRONIC OBSTRUCTIVE PULMONARY DISEASE
     Dosage: 1 PUFF(S), QD
     Route: 055
     Dates: start: 20150209, end: 20150209
  9. PROVENTIL [Concomitant]
     Active Substance: ALBUTEROL
  10. HYDROXYCHLOROQUINE [Concomitant]
     Active Substance: HYDROXYCHLOROQUINE
  11. TRIAMCINOLONE [Concomitant]
     Active Substance: TRIAMCINOLONE

REACTIONS (6)
  - Cerebrovascular accident [Unknown]
  - Lung cancer metastatic [Fatal]
  - Metastases to central nervous system [Fatal]
  - Chronic obstructive pulmonary disease [Fatal]
  - Respiratory failure [Fatal]
  - Dysphagia [Recovered/Resolved]

NARRATIVE: CASE EVENT DATE: 2015
